FAERS Safety Report 16485889 (Version 1)
Quarter: 2019Q2

REPORT INFORMATION
  Report Type: Spontaneous
  Country: FR (occurrence: FR)
  Receive Date: 20190627
  Receipt Date: 20190627
  Transmission Date: 20190711
  Serious: Yes (Hospitalization, Other)
  Sender: FDA-Public Use
  Company Number: FR-JNJFOC-20190620192

PATIENT
  Age: 92 Year
  Sex: Male
  Weight: 56 kg

DRUGS (1)
  1. XARELTO [Suspect]
     Active Substance: RIVAROXABAN
     Indication: ATRIAL FIBRILLATION
     Dosage: 1 DF, UNK
     Route: 048
     Dates: end: 20190522

REACTIONS (2)
  - Anticoagulation drug level above therapeutic [Recovered/Resolved]
  - Traumatic haemothorax [Recovering/Resolving]

NARRATIVE: CASE EVENT DATE: 20190522
